FAERS Safety Report 4518448-3 (Version None)
Quarter: 2004Q4

REPORT INFORMATION
  Report Type: 
  Country: None (occurrence: None)
  Receive Date: 20041202
  Receipt Date: 20040503
  Transmission Date: 20050328
  Serious: Yes (Other)
  Sender: FDA-Public Use
  Company Number: 2002-11-1653

PATIENT
  Age: 42 Year
  Sex: Male
  Weight: 81.6475 kg

DRUGS (8)
  1. CHLOR-TRIMETON [Suspect]
     Indication: NASOPHARYNGITIS
     Dosage: ORAL
     Route: 048
  2. TAVIST D [Concomitant]
  3. TUSS-ORNADE [Concomitant]
  4. HALLS DROPS [Concomitant]
  5. ALKA-SELTZER PLUS COLD MEDICINE [Concomitant]
  6. DIMETAPP [Concomitant]
  7. AFRIN SINUS SPRAY [Concomitant]
  8. MARIJUANA [Concomitant]

REACTIONS (9)
  - ANEURYSM [None]
  - CEREBROVASCULAR ACCIDENT [None]
  - DEPRESSED MOOD [None]
  - DILATATION VENTRICULAR [None]
  - DRUG ABUSER [None]
  - HYDROCEPHALUS [None]
  - HYPERTENSION [None]
  - MENTAL DISORDER [None]
  - PSYCHOTIC DISORDER [None]
